FAERS Safety Report 20226244 (Version 5)
Quarter: 2022Q3

REPORT INFORMATION
  Report Type: Spontaneous
  Country: FR (occurrence: FR)
  Receive Date: 20211224
  Receipt Date: 20220907
  Transmission Date: 20221026
  Serious: Yes (Hospitalization, Other)
  Sender: FDA-Public Use
  Company Number: US-CELGENE-FRA-20211205536

PATIENT
  Age: 72 Year
  Sex: Male
  Weight: 84 kg

DRUGS (17)
  1. VENCLEXTA [Suspect]
     Active Substance: VENETOCLAX
     Indication: Myelodysplastic syndrome
     Route: 048
  2. AZACITIDINE [Suspect]
     Active Substance: AZACITIDINE
     Indication: Myelodysplastic syndrome
     Dosage: (75 MG/M2,ONE IN ONE DAY) 7 DAY WITHIN FIRST 9 CALENDAR PER 28 DAY CYCLE
     Route: 058
     Dates: start: 20210802
  3. PLACEBO [Suspect]
     Active Substance: UNSPECIFIED INGREDIENT
     Indication: Product used for unknown indication
     Dosage: ORAL BLINDED PLACEBO, FOR 14 DAYS PER 28 DAY CYCLE
     Route: 065
     Dates: start: 20210802
  4. CIPROFLOXACIN [Concomitant]
     Active Substance: CIPROFLOXACIN
     Indication: Febrile neutropenia
     Dates: start: 20210801, end: 20210901
  5. FUNGIZONE [Concomitant]
     Active Substance: AMPHOTERICIN B
     Indication: Antifungal prophylaxis
     Dosage: 1 DOSE 1D
     Dates: start: 20210709
  6. VALACYCLOVIR [Concomitant]
     Active Substance: VALACYCLOVIR HYDROCHLORIDE
     Indication: Prophylaxis
     Dosage: 1000 MILLIGRAM
     Dates: start: 20210709
  7. BACTRIM [Concomitant]
     Active Substance: SULFAMETHOXAZOLE\TRIMETHOPRIM
     Indication: Prophylaxis
     Dosage: 3 IN 1 WK
  8. BACTRIM [Concomitant]
     Active Substance: SULFAMETHOXAZOLE\TRIMETHOPRIM
     Indication: Prophylaxis
     Dosage: 400 MILLIGRAM
     Dates: start: 20210709
  9. AVOCADO OIL\SOYBEAN OIL [Concomitant]
     Active Substance: AVOCADO OIL\SOYBEAN OIL
     Indication: Arthritis
     Dosage: 1 IN 1 D
     Dates: start: 2001
  10. PANTOPRAZOLE [Concomitant]
     Active Substance: PANTOPRAZOLE
     Indication: Prophylaxis
     Dates: start: 20210709
  11. PANTOPRAZOLE [Concomitant]
     Active Substance: PANTOPRAZOLE
     Indication: Inflammation
  12. FUROSEMIDE [Concomitant]
     Active Substance: FUROSEMIDE
     Indication: Oedema peripheral
     Dosage: 1 IN 1 D
     Dates: start: 20210917
  13. CALCIUM CHLORIDE\POTASSIUM CHLORIDE\SODIUM LACTATE [Concomitant]
     Active Substance: CALCIUM CHLORIDE\POTASSIUM CHLORIDE\SODIUM LACTATE
     Indication: Prophylaxis
     Dates: start: 20210801, end: 20210812
  14. ALLOPURINOL [Concomitant]
     Active Substance: ALLOPURINOL
     Indication: Prophylaxis
     Dosage: FREQUENCY TEXT: NOT PROVIDED
  15. ALLOPURINOL [Concomitant]
     Active Substance: ALLOPURINOL
     Indication: Prophylaxis
     Dosage: 1 IN 1 D
  16. ALLOPURINOL [Concomitant]
     Active Substance: ALLOPURINOL
     Indication: Prophylaxis
  17. PIPERACILLIN SODIUM\TAZOBACTAM SODIUM [Concomitant]
     Active Substance: PIPERACILLIN SODIUM\TAZOBACTAM SODIUM
     Indication: Febrile neutropenia
     Dates: start: 202108, end: 202109

REACTIONS (12)
  - Bacterial test positive [Recovered/Resolved]
  - Rotator cuff repair [Unknown]
  - Rotator cuff syndrome [Unknown]
  - Knee arthroplasty [Unknown]
  - Osteotomy [Unknown]
  - Colitis [Recovered/Resolved]
  - Klebsiella sepsis [Recovered/Resolved]
  - Biopsy skin [Unknown]
  - Anaemia [Unknown]
  - Rash erythematous [Unknown]
  - Arthritis [Unknown]
  - Neutropenia [Unknown]

NARRATIVE: CASE EVENT DATE: 20210925
